FAERS Safety Report 13389402 (Version 3)
Quarter: 2017Q2

REPORT INFORMATION
  Report Type: Report from Study
  Country: EG (occurrence: EG)
  Receive Date: 20170330
  Receipt Date: 20170404
  Transmission Date: 20170830
  Serious: Yes (Hospitalization)
  Sender: FDA-Public Use
  Company Number: EG-JNJFOC-20170330840

PATIENT
  Age: 61 Year
  Sex: Female

DRUGS (6)
  1. MULTIRELAX [Concomitant]
     Indication: BACK PAIN
     Route: 065
     Dates: start: 20160617
  2. BETOLVEX [Concomitant]
     Active Substance: CYANOCOBALAMIN
     Indication: BACK PAIN
     Route: 030
     Dates: start: 20160617
  3. SILYMARIN [Concomitant]
     Active Substance: MILK THISTLE
     Indication: HEPATIC ENZYME INCREASED
     Route: 048
     Dates: start: 20160523
  4. VITAMIN E [Concomitant]
     Active Substance: .ALPHA.-TOCOPHEROL
     Indication: HEPATIC ENZYME INCREASED
     Route: 065
     Dates: start: 20160523
  5. SIMPONI [Suspect]
     Active Substance: GOLIMUMAB
     Indication: RHEUMATOID ARTHRITIS
     Route: 058
     Dates: start: 20161117, end: 20161212
  6. DDB [Concomitant]
     Indication: HEPATIC ENZYME INCREASED
     Route: 065
     Dates: start: 20160523

REACTIONS (1)
  - Pyrexia [Recovered/Resolved]

NARRATIVE: CASE EVENT DATE: 20161212
